FAERS Safety Report 26099845 (Version 1)
Quarter: 2025Q4

REPORT INFORMATION
  Report Type: Spontaneous
  Country: EU (occurrence: UA)
  Receive Date: 20251128
  Receipt Date: 20251128
  Transmission Date: 20260119
  Serious: No
  Sender: ALKEM
  Company Number: EU-ALKEM LABORATORIES LIMITED-UA-ALKEM-2025-07258

PATIENT
  Age: 3 Decade
  Sex: Female

DRUGS (9)
  1. OLANZAPINE [Suspect]
     Active Substance: OLANZAPINE
     Indication: Schizophrenia
     Dosage: 20 MILLIGRAM
     Route: 048
  2. OLANZAPINE [Suspect]
     Active Substance: OLANZAPINE
     Indication: Psychotic disorder
     Dosage: 10 MILLIGRAM (REDUCED DOSE)
     Route: 048
  3. OLANZAPINE [Suspect]
     Active Substance: OLANZAPINE
     Dosage: 10 MILLIGRAM (REINSTATEMENT DOSE)
     Route: 048
  4. CLOZAPINE [Suspect]
     Active Substance: CLOZAPINE
     Indication: Schizophrenia
     Dosage: UNK (LOW DOSE)
     Route: 065
  5. CLOZAPINE [Suspect]
     Active Substance: CLOZAPINE
     Indication: Psychotic disorder
     Dosage: 25 MILLIGRAM, BID
     Route: 048
  6. ASENAPINE [Concomitant]
     Active Substance: ASENAPINE
     Indication: Psychotic disorder
     Dosage: 25 MILLIGRAM, BID
     Route: 048
     Dates: start: 2020
  7. ASENAPINE [Concomitant]
     Active Substance: ASENAPINE
     Indication: Schizophrenia
     Dosage: 20 MILLIGRAM, BID
     Route: 048
     Dates: start: 202308
  8. Asenapil [Concomitant]
     Indication: Psychotic disorder
     Dosage: 25 MILLIGRAM, BID
     Route: 048
  9. Asenapil [Concomitant]
     Indication: Schizophrenia

REACTIONS (4)
  - Salivary hypersecretion [Unknown]
  - Tremor [Recovering/Resolving]
  - Dyskinesia [Recovering/Resolving]
  - Product name confusion [Unknown]
